FAERS Safety Report 6287534-2 (Version None)
Quarter: 2009Q3

REPORT INFORMATION
  Report Type: 
  Country: None (occurrence: None)
  Receive Date: 20090727
  Receipt Date: 20090716
  Transmission Date: 20100115
  Serious: Yes (Hospitalization)
  Sender: FDA-Public Use
  Company Number: 2009008773

PATIENT
  Age: 7 Month
  Sex: Female

DRUGS (1)
  1. ACTIQ [Suspect]
     Dosage: BU
     Route: 002

REACTIONS (4)
  - ACCIDENTAL DRUG INTAKE BY CHILD [None]
  - APNOEA [None]
  - HEART RATE INCREASED [None]
  - RESPIRATORY RATE DECREASED [None]
